FAERS Safety Report 17751625 (Version 1)
Quarter: 2020Q2

REPORT INFORMATION
  Report Type: Report from Study
  Country: BR (occurrence: BR)
  Receive Date: 20200506
  Receipt Date: 20200506
  Transmission Date: 20200714
  Serious: Yes (Other)
  Sender: FDA-Public Use
  Company Number: PHHY2017BR098569

PATIENT
  Age: 63 Year
  Sex: Female
  Weight: 66 kg

DRUGS (4)
  1. AEROLIN [Suspect]
     Active Substance: ALBUTEROL
     Indication: CHRONIC OBSTRUCTIVE PULMONARY DISEASE
     Dosage: UNK
     Route: 065
  2. FORASEQ [Suspect]
     Active Substance: BUDESONIDE\FORMOTEROL FUMARATE
     Indication: BRONCHITIS
  3. FORASEQ [Suspect]
     Active Substance: BUDESONIDE\FORMOTEROL FUMARATE
     Indication: ASTHMA
     Dosage: 1 DF (BUDESONIDE 400 MCG, FORMOTEROL FUMARATE 12 MC), BID (USES TWICE A DAY IN CASE OF ACUTE CRISIS)
     Route: 055
  4. FORASEQ [Suspect]
     Active Substance: BUDESONIDE\FORMOTEROL FUMARATE
     Indication: CHRONIC OBSTRUCTIVE PULMONARY DISEASE

REACTIONS (16)
  - Dyspnoea [Unknown]
  - Nasopharyngitis [Not Recovered/Not Resolved]
  - Lung disorder [Unknown]
  - Malaise [Unknown]
  - Allergic pharyngitis [Unknown]
  - Feeling abnormal [Unknown]
  - Palpitations [Unknown]
  - Catarrh [Unknown]
  - Chest discomfort [Unknown]
  - Fatigue [Unknown]
  - Asthmatic crisis [Unknown]
  - Respiratory disorder [Unknown]
  - Rhinitis allergic [Unknown]
  - Expired product administered [Recovered/Resolved]
  - Intentional product misuse [Recovered/Resolved]
  - Device use issue [Unknown]

NARRATIVE: CASE EVENT DATE: 202003
